FAERS Safety Report 20660710 (Version 1)
Quarter: 2022Q1

REPORT INFORMATION
  Report Type: Spontaneous
  Country: FR (occurrence: FR)
  Receive Date: 20220331
  Receipt Date: 20220331
  Transmission Date: 20220424
  Serious: Yes (Disabling)
  Sender: FDA-Public Use
  Company Number: FR-GRUNENTHAL-2022-101502

PATIENT
  Age: 47 Year
  Sex: Female

DRUGS (6)
  1. TRAMADOL [Suspect]
     Active Substance: TRAMADOL
     Indication: Product used for unknown indication
     Dosage: UNK
     Route: 065
  2. QUTENZA [Suspect]
     Active Substance: CAPSAICIN
     Indication: Hyperaesthesia
     Dosage: UNK
     Route: 065
     Dates: start: 20211208
  3. QUTENZA [Suspect]
     Active Substance: CAPSAICIN
     Indication: Complex regional pain syndrome
  4. KETOPROFEN [Concomitant]
     Active Substance: KETOPROFEN
     Indication: Product used for unknown indication
     Dosage: UNK
     Route: 065
  5. LYRICA [Concomitant]
     Active Substance: PREGABALIN
     Indication: Product used for unknown indication
     Dosage: UNK
     Route: 065
  6. DOLIPRANE [Concomitant]
     Active Substance: ACETAMINOPHEN
     Indication: Product used for unknown indication
     Dosage: UNK
     Route: 065

REACTIONS (3)
  - Burning sensation [Recovering/Resolving]
  - Pain [Recovering/Resolving]
  - Drug ineffective [Recovering/Resolving]

NARRATIVE: CASE EVENT DATE: 20211208
